FAERS Safety Report 16003126 (Version 2)
Quarter: 2019Q1

REPORT INFORMATION
  Report Type: Spontaneous
  Country: US (occurrence: US)
  Receive Date: 20190225
  Receipt Date: 20190305
  Transmission Date: 20190418
  Serious: No
  Sender: FDA-Public Use
  Company Number: US-SA-2019SA050737

PATIENT
  Age: 51 Year
  Sex: Male

DRUGS (1)
  1. ADMELOG [Suspect]
     Active Substance: INSULIN LISPRO
     Indication: DIABETES MELLITUS
     Dosage: 10-15 UNITS, TID
     Route: 065

REACTIONS (4)
  - Product dose omission [Unknown]
  - Device operational issue [Unknown]
  - Aggression [Unknown]
  - Blood glucose decreased [Unknown]
